FAERS Safety Report 5621613-5 (Version None)
Quarter: 2008Q1

REPORT INFORMATION
  Report Type: 
  Country: None (occurrence: None)
  Receive Date: 20080211
  Receipt Date: 20080201
  Transmission Date: 20080703
  Serious: Yes (Other)
  Sender: FDA-Public Use
  Company Number: PHBS2008TN01621

PATIENT
  Age: 55 Year
  Sex: Female

DRUGS (1)
  1. COTAREG [Suspect]
     Indication: HYPERTENSION
     Dosage: 160 MG/DAY
     Route: 048

REACTIONS (2)
  - THROMBOCYTOPENIA [None]
  - VAGINAL HAEMORRHAGE [None]
